FAERS Safety Report 24370676 (Version 1)
Quarter: 2024Q3

REPORT INFORMATION
  Report Type: Spontaneous
  Country: US (occurrence: US)
  Receive Date: 20240927
  Receipt Date: 20240927
  Transmission Date: 20241016
  Serious: Yes (Hospitalization, Other)
  Sender: AUROBINDO
  Company Number: US-AUROBINDO-AUR-APL-2024-047187

PATIENT

DRUGS (1)
  1. ERTAPENEM [Suspect]
     Active Substance: ERTAPENEM
     Indication: Product used for unknown indication
     Dosage: 2 DOSAGE FORM
     Route: 065

REACTIONS (5)
  - Seizure [Unknown]
  - Unresponsive to stimuli [Unknown]
  - Confusional state [Unknown]
  - Mental status changes [Unknown]
  - Disorientation [Unknown]
